FAERS Safety Report 16762012 (Version 1)
Quarter: 2019Q3

REPORT INFORMATION
  Report Type: Spontaneous
  Country: US (occurrence: US)
  Receive Date: 20190830
  Receipt Date: 20190830
  Transmission Date: 20191005
  Serious: No
  Sender: FDA-Public Use
  Company Number: US-B.I. PHARMACEUTICALS,INC./RIDGEFIELD-2019-US-001624

PATIENT
  Sex: Female

DRUGS (3)
  1. SYNJARDY XR [Suspect]
     Active Substance: EMPAGLIFLOZIN\METFORMIN HYDROCHLORIDE
     Indication: PRODUCT USED FOR UNKNOWN INDICATION
     Dosage: 5MG/1000MG BID
     Route: 065
     Dates: start: 20190820
  2. METFORMIN [Concomitant]
     Active Substance: METFORMIN HYDROCHLORIDE
     Indication: PRODUCT USED FOR UNKNOWN INDICATION
     Route: 065
  3. SYNJARDY XR [Suspect]
     Active Substance: EMPAGLIFLOZIN\METFORMIN HYDROCHLORIDE
     Dosage: 5/1000MG BID
     Route: 065

REACTIONS (6)
  - Headache [Unknown]
  - Medication error [Unknown]
  - Dyspepsia [Unknown]
  - Feeling abnormal [Unknown]
  - Nausea [Unknown]
  - Nocturia [Unknown]

NARRATIVE: CASE EVENT DATE: 20190820
